FAERS Safety Report 13675358 (Version 1)
Quarter: 2017Q2

REPORT INFORMATION
  Report Type: Spontaneous
  Country: SI (occurrence: SI)
  Receive Date: 20170621
  Receipt Date: 20170621
  Transmission Date: 20170830
  Serious: Yes (Hospitalization)
  Sender: FDA-Public Use
  Company Number: SI-ASTRAZENECA-2017SE53872

PATIENT
  Age: 23264 Day
  Sex: Male
  Weight: 104 kg

DRUGS (8)
  1. ATORIS [Concomitant]
     Active Substance: ATORVASTATIN CALCIUM
     Indication: HYPERLIPIDAEMIA
     Route: 048
  2. ZALDIAR [Concomitant]
     Active Substance: ACETAMINOPHEN\TRAMADOL HYDROCHLORIDE
  3. CONCOR [Concomitant]
     Active Substance: BISOPROLOL FUMARATE
  4. METFORMIN [Concomitant]
     Active Substance: METFORMIN HYDROCHLORIDE
  5. INSULIN [Concomitant]
     Active Substance: INSULIN NOS
  6. CARDIOPIRIN [Concomitant]
     Active Substance: ASPIRIN
     Route: 048
  7. FORXIGA [Suspect]
     Active Substance: DAPAGLIFLOZIN
     Indication: DIABETES MELLITUS
     Dosage: 10.0MG UNKNOWN
     Route: 048
     Dates: end: 20170312
  8. AMLODIPINE [Concomitant]
     Active Substance: AMLODIPINE BESYLATE
     Indication: HYPERTENSION
     Route: 048

REACTIONS (3)
  - Renal impairment [Recovered/Resolved]
  - Dehydration [Recovered/Resolved]
  - Mental disorder [Unknown]

NARRATIVE: CASE EVENT DATE: 20170312
